FAERS Safety Report 6693317-1 (Version None)
Quarter: 2010Q2

REPORT INFORMATION
  Report Type: 
  Country: None (occurrence: None)
  Receive Date: 20100421
  Receipt Date: 20100421
  Transmission Date: 20101027
  Serious: No
  Sender: FDA-Public Use
  Company Number: None

PATIENT
  Age: 70 Year
  Sex: Male

DRUGS (3)
  1. INDIUM- 111 DTPA INJ [Suspect]
     Indication: NORMAL PRESSURE HYDROCEPHALUS
     Dosage: 0.5 MCI ONCE IT SINGLE DOSE
     Route: 038
     Dates: start: 20100414, end: 20100414
  2. INDIUM- 111 DTPA INJ [Suspect]
  3. IODINE-123 [Suspect]

REACTIONS (2)
  - DRUG DISPENSING ERROR [None]
  - WRONG DRUG ADMINISTERED [None]
